FAERS Safety Report 10426480 (Version 1)
Quarter: 2014Q3

REPORT INFORMATION
  Report Type: Spontaneous
  Country: US (occurrence: None)
  Receive Date: 20140725
  Receipt Date: 20140725
  Transmission Date: 20150326
  Serious: No
  Sender: FDA-Public Use
  Company Number: AP356-00581-SPO-US

PATIENT
  Age: 24 Year
  Sex: Female

DRUGS (6)
  1. HUMULIN N (INSULIN INJECTION, ISOPHANE) [Concomitant]
  2. HUMULIN R (INSULIN HUMAN) [Concomitant]
  3. BELVIQ [Suspect]
     Active Substance: LORCASERIN HYDROCHLORIDE
     Indication: WEIGHT DECREASED
     Route: 048
     Dates: start: 20140207, end: 20140325
  4. SYNTHROID [Concomitant]
     Active Substance: LEVOTHYROXINE SODIUM
  5. GLUMETZA [Concomitant]
     Active Substance: METFORMIN HYDROCHLORIDE
  6. FISH OIL [Concomitant]
     Active Substance: FISH OIL

REACTIONS (1)
  - Suicidal ideation [None]

NARRATIVE: CASE EVENT DATE: 201403
